FAERS Safety Report 11131578 (Version 1)
Quarter: 2015Q2

REPORT INFORMATION
  Report Type: Report from Study
  Country: GB (occurrence: GB)
  Receive Date: 20150522
  Receipt Date: 20150522
  Transmission Date: 20150821
  Serious: Yes (Hospitalization, Other)
  Sender: FDA-Public Use
  Company Number: GB-CELGENE-167-50794-14020508

PATIENT
  Age: 72 Year
  Sex: Male
  Weight: 83.8 kg

DRUGS (10)
  1. VORINOSTAT [Suspect]
     Active Substance: VORINOSTAT
     Route: 048
     Dates: end: 20140311
  2. FLUCONAZOLE. [Concomitant]
     Active Substance: FLUCONAZOLE
     Indication: PROPHYLAXIS
     Route: 065
     Dates: start: 2014, end: 20140313
  3. VIDAZA [Suspect]
     Active Substance: AZACITIDINE
     Indication: ACUTE MYELOID LEUKAEMIA
     Route: 058
     Dates: start: 20131014
  4. VIDAZA [Suspect]
     Active Substance: AZACITIDINE
     Route: 058
     Dates: end: 20140114
  5. VIDAZA [Suspect]
     Active Substance: AZACITIDINE
     Route: 058
     Dates: end: 20140311
  6. CIPROFLOXACIN. [Concomitant]
     Active Substance: CIPROFLOXACIN
     Indication: PROPHYLAXIS
     Route: 065
     Dates: start: 2014, end: 20140313
  7. VIDAZA [Suspect]
     Active Substance: AZACITIDINE
     Route: 058
     Dates: end: 20140409
  8. VORINOSTAT [Suspect]
     Active Substance: VORINOSTAT
     Route: 048
     Dates: end: 20140114
  9. VORINOSTAT [Suspect]
     Active Substance: VORINOSTAT
     Indication: ACUTE MYELOID LEUKAEMIA
     Route: 048
     Dates: start: 20131016
  10. VORINOSTAT [Suspect]
     Active Substance: VORINOSTAT
     Route: 048
     Dates: end: 20140409

REACTIONS (6)
  - Epistaxis [Recovered/Resolved]
  - Gastrointestinal ulcer [Recovered/Resolved]
  - Epistaxis [Recovered/Resolved]
  - Gastrointestinal ulcer [Recovered/Resolved]
  - Anaemia [Recovered/Resolved]
  - Gastrointestinal ulcer haemorrhage [Recovered/Resolved]

NARRATIVE: CASE EVENT DATE: 20140130
